FAERS Safety Report 11592756 (Version 3)
Quarter: 2015Q4

REPORT INFORMATION
  Report Type: Spontaneous
  Country: BE (occurrence: BE)
  Receive Date: 20151005
  Receipt Date: 20151015
  Transmission Date: 20160304
  Serious: Yes (Hospitalization, Other)
  Sender: FDA-Public Use
  Company Number: BE-BIOGENIDEC-2015BI133527

PATIENT
  Age: 28 Year
  Sex: Female

DRUGS (10)
  1. BACTRIM [Concomitant]
     Active Substance: SULFAMETHOXAZOLE\TRIMETHOPRIM
     Dates: start: 20150822, end: 20150915
  2. BICLAR [Concomitant]
     Active Substance: CLARITHROMYCIN
     Dates: start: 201504
  3. AVONEX [Suspect]
     Active Substance: INTERFERON BETA-1A
     Indication: MULTIPLE SCLEROSIS
     Route: 030
     Dates: start: 201501, end: 20150919
  4. PROVAQUONE [Concomitant]
     Dates: start: 201504
  5. TETRALYZAL [Concomitant]
     Dates: start: 201504
  6. DIFLUCAN [Concomitant]
     Active Substance: FLUCONAZOLE
     Dates: start: 201504
  7. RIFADINE [Concomitant]
     Active Substance: RIFAMPIN
     Dates: start: 20150822, end: 20150915
  8. CEFUROXIME. [Concomitant]
     Active Substance: CEFUROXIME
     Dates: start: 201504
  9. DOXYCYCLINE. [Concomitant]
     Active Substance: DOXYCYCLINE
     Dates: start: 201504, end: 20150915
  10. FASYGIN [Concomitant]
     Dates: start: 201504

REACTIONS (3)
  - Drug-induced liver injury [Not Recovered/Not Resolved]
  - Localised oedema [Not Recovered/Not Resolved]
  - Drug reaction with eosinophilia and systemic symptoms [Not Recovered/Not Resolved]

NARRATIVE: CASE EVENT DATE: 20150914
